FAERS Safety Report 6382293-7 (Version None)
Quarter: 2009Q3

REPORT INFORMATION
  Report Type: 
  Country: None (occurrence: None)
  Receive Date: 20090930
  Receipt Date: 20090923
  Transmission Date: 20100115
  Serious: Yes (Death, Hospitalization, Other)
  Sender: FDA-Public Use
  Company Number: GB-PURDUE-GBR-2009-0005613

PATIENT
  Age: 71 Year
  Sex: Female

DRUGS (8)
  1. UNIPHYLLIN CONTINUS TABLETS 200 MG [Suspect]
     Indication: DRUG USE FOR UNKNOWN INDICATION
     Dosage: 200 MG, BID
     Route: 065
  2. CAPECITABINE [Suspect]
     Indication: GASTRIC CANCER
     Route: 048
  3. ETHAMSYLATE [Suspect]
     Indication: GASTROINTESTINAL HAEMORRHAGE
     Dosage: 500 MG, QID
     Route: 065
  4. LANSOPRAZOLE [Suspect]
     Indication: DRUG USE FOR UNKNOWN INDICATION
     Dosage: 30 MG, BID
     Route: 048
  5. METFORMIN HYDROCHLORIDE [Suspect]
     Indication: DRUG USE FOR UNKNOWN INDICATION
     Dosage: 500 MG, DAILY
     Route: 065
  6. PARACETAMOL [Suspect]
     Indication: DRUG USE FOR UNKNOWN INDICATION
     Dosage: 1 G, QID
     Route: 065
  7. TRANEXAMIC ACID [Suspect]
     Indication: GASTROINTESTINAL HAEMORRHAGE
     Dosage: 1 G, TID
     Route: 048
  8. PANTOPRAZOLE SODIUM [Concomitant]
     Dosage: UNK
     Route: 042

REACTIONS (6)
  - ANAEMIA [None]
  - DISEASE PROGRESSION [None]
  - DYSPNOEA [None]
  - MELAENA [None]
  - RECTAL HAEMORRHAGE [None]
  - SEPSIS [None]
